FAERS Safety Report 5207787-9 (Version None)
Quarter: 2006Q4

REPORT INFORMATION
  Report Type: 
  Country: None (occurrence: None)
  Receive Date: 20061030
  Receipt Date: 20060807
  Transmission Date: 20070319
  Serious: No
  Sender: FDA-Public Use
  Company Number: 256073

PATIENT
  Age: 58 Year
  Sex: Female
  Weight: 75.3 kg

DRUGS (3)
  1. LEVEMIR [Suspect]
     Indication: DIABETES MELLITUS INSULIN-DEPENDENT
     Dosage: 13 IU, QD, SUBCUTANEOUS
     Route: 058
     Dates: start: 20060804, end: 20060805
  2. SYNTHROID [Concomitant]
  3. HUMALOG [Concomitant]

REACTIONS (2)
  - BLOOD GLUCOSE INCREASED [None]
  - DYSPNOEA [None]
